FAERS Safety Report 8409110-5 (Version None)
Quarter: 2012Q2

REPORT INFORMATION
  Report Type: 
  Country: None (occurrence: None)
  Receive Date: 20120604
  Receipt Date: 20120522
  Transmission Date: 20120825
  Serious: Yes (Death, Hospitalization, Other)
  Sender: FDA-Public Use
  Company Number: JP-CELGENEUS-087-50794-11091113

PATIENT
  Age: 65 Year
  Sex: Male
  Weight: 42 kg

DRUGS (14)
  1. VIDAZA [Suspect]
     Dosage: 37.5 MILLIGRAM/SQ. METER
     Route: 041
     Dates: start: 20110729, end: 20110804
  2. NEUPOGEN [Concomitant]
     Route: 065
     Dates: start: 20110829, end: 20110903
  3. LEVOFLOXACIN [Concomitant]
     Route: 065
     Dates: start: 20110706, end: 20110803
  4. VANCOMYCIN HYDROCHLORIDE [Concomitant]
     Route: 065
     Dates: start: 20110610, end: 20110621
  5. VFEND [Concomitant]
     Route: 065
     Dates: start: 20110629, end: 20110630
  6. FLUCONAZOLE [Concomitant]
     Route: 065
     Dates: start: 20110602, end: 20110628
  7. FUNGUARD [Concomitant]
     Route: 065
     Dates: start: 20110804, end: 20110816
  8. MAXIPIME [Concomitant]
     Route: 065
     Dates: start: 20110610, end: 20110621
  9. MAXIPIME [Concomitant]
     Route: 065
     Dates: start: 20110822, end: 20110904
  10. VFEND [Concomitant]
     Route: 065
     Dates: start: 20110701, end: 20110803
  11. CEFTAZIDIME [Concomitant]
     Route: 065
     Dates: start: 20110803, end: 20110807
  12. VIDAZA [Suspect]
     Dosage: 75 MILLIGRAM/SQ. METER
     Route: 041
     Dates: start: 20110607, end: 20110613
  13. FLUCONAZOLE [Concomitant]
     Route: 065
     Dates: start: 20110817, end: 20110830
  14. MEROPENEM [Concomitant]
     Route: 065
     Dates: start: 20110808, end: 20110821

REACTIONS (6)
  - BRONCHOPULMONARY ASPERGILLOSIS [None]
  - WEIGHT DECREASED [None]
  - PNEUMONIA [None]
  - ACUTE MYELOID LEUKAEMIA [None]
  - BONE MARROW FAILURE [None]
  - NEUTROPHIL COUNT DECREASED [None]
